FAERS Safety Report 9258527 (Version 1)
Quarter: 2013Q2

REPORT INFORMATION
  Report Type: Spontaneous
  Country: US (occurrence: US)
  Receive Date: 20130426
  Receipt Date: 20130426
  Transmission Date: 20140414
  Serious: No
  Sender: FDA-Public Use
  Company Number: US-009507513-1002USA03517

PATIENT
  Sex: Female

DRUGS (2)
  1. JANUVIA [Suspect]
     Indication: TYPE 2 DIABETES MELLITUS
     Dosage: 50 MG, QD
     Route: 048
     Dates: start: 20100212
  2. MK-9378 [Concomitant]

REACTIONS (3)
  - Cough [Recovering/Resolving]
  - Respiratory tract congestion [Recovering/Resolving]
  - Headache [Recovering/Resolving]
